FAERS Safety Report 5113967-3 (Version None)
Quarter: 2006Q3

REPORT INFORMATION
  Report Type: 
  Country: None (occurrence: None)
  Receive Date: 20060921
  Receipt Date: 20060913
  Transmission Date: 20061208
  Serious: Yes (Hospitalization)
  Sender: FDA-Public Use
  Company Number: 2006BI010493

PATIENT
  Age: 68 Year
  Sex: Female

DRUGS (7)
  1. AVONEX [Suspect]
     Indication: MULTIPLE SCLEROSIS
     Dosage: 30 UG;QW;IM
     Route: 030
     Dates: start: 20040913, end: 20060501
  2. SYNTHROID [Concomitant]
  3. EVISTA [Concomitant]
  4. NEURONTIN [Concomitant]
  5. EFFEXOR [Concomitant]
  6. CELEBREX [Concomitant]
  7. FOSAMAX [Concomitant]

REACTIONS (4)
  - ARTHRALGIA [None]
  - FALL [None]
  - INTERVERTEBRAL DISC PROTRUSION [None]
  - PAIN [None]
